FAERS Safety Report 15216165 (Version 4)
Quarter: 2018Q3

REPORT INFORMATION
  Report Type: Spontaneous
  Country: SK (occurrence: SK)
  Receive Date: 20180730
  Receipt Date: 20180906
  Transmission Date: 20181010
  Serious: Yes (Other)
  Sender: FDA-Public Use
  Company Number: PHHY2018SK013597

PATIENT
  Age: 34 Year
  Sex: Male
  Weight: 85 kg

DRUGS (8)
  1. USTEKINUMAB [Concomitant]
     Active Substance: USTEKINUMAB
     Indication: PSORIASIS
     Route: 065
  2. INFLIXIMAB [Suspect]
     Active Substance: INFLIXIMAB
     Indication: PSORIASIS
     Dosage: UNK
     Route: 065
  3. EFALIZUMAB [Concomitant]
     Active Substance: EFALIZUMAB
     Indication: PSORIASIS
     Route: 065
  4. SECUKINUMAB. [Suspect]
     Active Substance: SECUKINUMAB
     Indication: PSORIASIS
     Dosage: UNK
     Route: 065
  5. PREDNISONE. [Suspect]
     Active Substance: PREDNISONE
     Indication: PSORIASIS
     Route: 048
  6. METHYLPREDNISOLONE. [Suspect]
     Active Substance: METHYLPREDNISOLONE
     Indication: PSORIASIS
     Dosage: ORAL METHYLPREDNISOLONE ADDED TO TREATMENT WITH SEKUKINUMAB
     Route: 048
  7. ETANERCEPT [Suspect]
     Active Substance: ETANERCEPT
     Indication: PSORIASIS
     Dosage: UNK
     Route: 065
  8. ADALIMUMAB [Concomitant]
     Active Substance: ADALIMUMAB
     Indication: PSORIASIS
     Route: 065

REACTIONS (9)
  - Cushing^s syndrome [Unknown]
  - Haemolytic anaemia [Recovered/Resolved]
  - Product use in unapproved indication [Unknown]
  - Condition aggravated [Unknown]
  - Rebound effect [Unknown]
  - Rebound psoriasis [Unknown]
  - Pituitary-dependent Cushing^s syndrome [Unknown]
  - Drug ineffective [Unknown]
  - Psoriasis [Unknown]

NARRATIVE: CASE EVENT DATE: 2016
